FAERS Safety Report 21237862 (Version 2)
Quarter: 2022Q3

REPORT INFORMATION
  Report Type: Report from Study
  Country: BR (occurrence: BR)
  Receive Date: 20220822
  Receipt Date: 20220926
  Transmission Date: 20221027
  Serious: Yes (Hospitalization)
  Sender: FDA-Public Use
  Company Number: BR-Merck Healthcare KGaA-9342163

PATIENT
  Age: 34 Year
  Sex: Male

DRUGS (2)
  1. CETUXIMAB [Suspect]
     Active Substance: CETUXIMAB
     Indication: Adenocarcinoma of colon
     Dosage: UNK, 2/M
     Route: 042
     Dates: start: 20220725
  2. CETUXIMAB [Suspect]
     Active Substance: CETUXIMAB
     Dosage: UNK, 2/M
     Route: 042
     Dates: start: 20220830

REACTIONS (5)
  - Hepatic necrosis [Not Recovered/Not Resolved]
  - Pyrexia [Not Recovered/Not Resolved]
  - Decreased appetite [Not Recovered/Not Resolved]
  - Malaise [Not Recovered/Not Resolved]
  - Off label use [Unknown]
